FAERS Safety Report 6913098-3 (Version None)
Quarter: 2010Q3

REPORT INFORMATION
  Report Type: 
  Country: None (occurrence: None)
  Receive Date: 20100806
  Receipt Date: 20090719
  Transmission Date: 20110219
  Serious: Yes (Other)
  Sender: FDA-Public Use
  Company Number: US-PFIZER INC-2009222636

PATIENT
  Sex: Female
  Weight: 90.264 kg

DRUGS (1)
  1. NORPACE [Suspect]
     Indication: ATRIAL FIBRILLATION
     Dosage: 150 MG, 2X/DAY
     Route: 048

REACTIONS (1)
  - ATRIAL FIBRILLATION [None]
